FAERS Safety Report 23446056 (Version 1)
Quarter: 2024Q1

REPORT INFORMATION
  Report Type: Spontaneous
  Country: CN (occurrence: CN)
  Receive Date: 20240126
  Receipt Date: 20240126
  Transmission Date: 20240410
  Serious: Yes (Other)
  Sender: FDA-Public Use
  Company Number: CN-ALLERGAN-2241929US

PATIENT

DRUGS (1)
  1. OZURDEX [Suspect]
     Active Substance: DEXAMETHASONE
     Indication: Necrotising retinitis
     Dosage: TIME INTERVAL: AS NECESSARY
     Route: 050

REACTIONS (2)
  - Cataract subcapsular [Unknown]
  - Off label use [Unknown]
